FAERS Safety Report 5070154-5 (Version None)
Quarter: 2006Q3

REPORT INFORMATION
  Report Type: 
  Country: None (occurrence: None)
  Receive Date: 20060803
  Receipt Date: 20060710
  Transmission Date: 20061208
  Serious: Yes (Other)
  Sender: FDA-Public Use
  Company Number: US-ROCHE-455006

PATIENT
  Age: 40 Year
  Sex: Female

DRUGS (4)
  1. PEGASYS [Suspect]
     Dosage: ROUTE REPORTED AS INJECTABLE.
     Route: 050
     Dates: start: 20060201, end: 20060713
  2. PEGASYS [Suspect]
     Route: 050
  3. RIBAVIRIN [Suspect]
     Indication: DRUG USE FOR UNKNOWN INDICATION
     Route: 048
     Dates: start: 20060201, end: 20060713
  4. RIBAVIRIN [Suspect]
     Route: 048

REACTIONS (7)
  - ALOPECIA [None]
  - BACK DISORDER [None]
  - BIPOLAR DISORDER [None]
  - MUSCLE SPASMS [None]
  - NEUROPATHY PERIPHERAL [None]
  - PHOTOPSIA [None]
  - STAPHYLOCOCCAL INFECTION [None]
